FAERS Safety Report 10268237 (Version 1)
Quarter: 2014Q2

REPORT INFORMATION
  Report Type: Spontaneous
  Country: DK (occurrence: DK)
  Receive Date: 20140630
  Receipt Date: 20140630
  Transmission Date: 20141212
  Serious: Yes (Hospitalization)
  Sender: FDA-Public Use
  Company Number: PHHY2014DK077115

PATIENT
  Age: 83 Year
  Sex: Female

DRUGS (13)
  1. METHOTREXATE SANDOZ [Suspect]
     Indication: RHEUMATOID ARTHRITIS
     Dosage: 8 DF, QD
     Dates: start: 20140201, end: 20140206
  2. ALPRAZOLAM KRKA [Concomitant]
     Indication: SEDATIVE THERAPY
  3. COMBAR [Concomitant]
     Indication: DEPRESSION
  4. DONEPEZILHYDROCHLORID [Concomitant]
     Indication: DEMENTIA ALZHEIMER^S TYPE
  5. FERRO DURETTER [Concomitant]
     Indication: MINERAL SUPPLEMENTATION
  6. FLUANXOL MITE [Concomitant]
     Indication: RESTLESSNESS
  7. HJERTEMAGNYL [Concomitant]
     Indication: THROMBOSIS PROPHYLAXIS
  8. MAGNESIA ^DAK^ [Concomitant]
     Indication: CONSTIPATION
  9. PINEX [Concomitant]
     Indication: PAIN
  10. PREDNISOLONE ^DAK^ [Concomitant]
     Indication: RHEUMATOID ARTHRITIS
  11. SERTRALIN BLUEFISH [Concomitant]
     Indication: DEPRESSION
  12. SIMVASTATIN ACTAVIS [Concomitant]
     Indication: HYPERCHOLESTEROLAEMIA
  13. TRADOLAN [Concomitant]
     Indication: PAIN

REACTIONS (7)
  - Toxicity to various agents [Recovering/Resolving]
  - Inappropriate schedule of drug administration [Recovered/Resolved]
  - Oral pain [Unknown]
  - Thirst [Unknown]
  - Bone marrow failure [Unknown]
  - Stomatitis [Unknown]
  - Accidental overdose [Recovering/Resolving]
